FAERS Safety Report 21491922 (Version 1)
Quarter: 2022Q4

REPORT INFORMATION
  Report Type: Spontaneous
  Country: EG (occurrence: None)
  Receive Date: 20221021
  Receipt Date: 20221021
  Transmission Date: 20230113
  Serious: Yes (Other)
  Sender: FDA-Public Use
  Company Number: EG-Hikma Pharmaceuticals USA Inc.-EG-H14001-22-02714

PATIENT
  Age: 35 Year
  Sex: Female
  Weight: 79 kg

DRUGS (1)
  1. PACLITAXEL [Suspect]
     Active Substance: PACLITAXEL
     Indication: Breast cancer
     Route: 041
     Dates: start: 20220720

REACTIONS (4)
  - Bronchospasm [Recovered/Resolved]
  - Abdominal rigidity [Recovered/Resolved]
  - Drug hypersensitivity [Recovered/Resolved]
  - Dyspnoea [Recovered/Resolved]

NARRATIVE: CASE EVENT DATE: 20220720
